FAERS Safety Report 5396057-4 (Version None)
Quarter: 2007Q3

REPORT INFORMATION
  Report Type: 
  Country: None (occurrence: None)
  Receive Date: 20070725
  Receipt Date: 20070720
  Transmission Date: 20080115
  Serious: Yes (Hospitalization)
  Sender: FDA-Public Use
  Company Number: ES-RB-007474-07

PATIENT
  Age: 63 Year
  Sex: Female

DRUGS (5)
  1. BUPREX [Suspect]
     Indication: DRUG USE FOR UNKNOWN INDICATION
     Dosage: DOSAGE AND FREQUENCY UNKNOWN
     Route: 065
     Dates: end: 20070316
  2. BUPREX [Suspect]
     Dosage: DOSAGE AND FREQUENCY UNKNOWN
     Route: 065
     Dates: end: 20070316
  3. DIPOTASSIUM CLORAZEPATE [Suspect]
     Indication: DRUG USE FOR UNKNOWN INDICATION
     Dosage: DOSAGE AND FREQUENCY UNKNOWN
     Route: 065
  4. AMITRIPTYLINE HCL [Suspect]
     Indication: DRUG USE FOR UNKNOWN INDICATION
     Dosage: DOSAGE AND FREQUENCY UNKNOWN
     Route: 065
  5. DURAGESIC-100 [Suspect]
     Indication: DRUG USE FOR UNKNOWN INDICATION
     Dosage: DOSAGE AND FREQUENCY UNKNOWN
     Route: 065
     Dates: start: 20070305, end: 20070316

REACTIONS (2)
  - DRUG INTERACTION [None]
  - SYNCOPE [None]
